FAERS Safety Report 16798558 (Version 1)
Quarter: 2019Q3

REPORT INFORMATION
  Report Type: Report from Study
  Country: None (occurrence: US)
  Receive Date: 20190912
  Receipt Date: 20190912
  Transmission Date: 20191005
  Serious: No
  Sender: FDA-Public Use
  Company Number: US-US WORLDMEDS, LLC-USW201908-001555

PATIENT
  Age: 59 Year
  Sex: Female

DRUGS (2)
  1. LUCEMYRA [Suspect]
     Active Substance: LOFEXIDINE
     Indication: ALCOHOL WITHDRAWAL SYNDROME
     Dates: end: 20190726
  2. VIVITROL [Concomitant]
     Active Substance: NALTREXONE
     Dates: start: 20190726

REACTIONS (2)
  - Malaise [Recovered/Resolved]
  - Product use in unapproved indication [Unknown]

NARRATIVE: CASE EVENT DATE: 20190726
